FAERS Safety Report 15108695 (Version 2)
Quarter: 2018Q3

REPORT INFORMATION
  Report Type: Report from Study
  Country: US (occurrence: US)
  Receive Date: 20180705
  Receipt Date: 20180716
  Transmission Date: 20181010
  Serious: Yes (Other)
  Sender: FDA-Public Use
  Company Number: US-AMGEN-USASL2018090473

PATIENT
  Age: 63 Year
  Sex: Female
  Weight: 86.18 kg

DRUGS (7)
  1. ENBREL [Suspect]
     Active Substance: ETANERCEPT
     Indication: RHEUMATOID ARTHRITIS
     Dosage: 50 MG, QWK
     Route: 058
     Dates: start: 20110418
  2. OMEPRAZOLE. [Concomitant]
     Active Substance: OMEPRAZOLE
     Dosage: 40 MG, QD
  3. RECLAST [Concomitant]
     Active Substance: ZOLEDRONIC ACID
     Indication: BONE DISORDER
     Dosage: 5 MG, (ONCE IN YEAR)
     Route: 042
  4. PROZAC [Concomitant]
     Active Substance: FLUOXETINE HYDROCHLORIDE
     Dosage: 20 MG, QD (IN THE MORNING)
     Route: 048
  5. ENBREL [Suspect]
     Active Substance: ETANERCEPT
     Dosage: 50 MG, QWK
     Route: 058
  6. WELLBUTRIN [Concomitant]
     Active Substance: BUPROPION HYDROCHLORIDE
     Dosage: 100 MG, QD
  7. SAXENDA [Concomitant]
     Active Substance: LIRAGLUTIDE
     Indication: WEIGHT DECREASED
     Dosage: 3 MG, QD
     Route: 058

REACTIONS (18)
  - Hip arthroplasty [Unknown]
  - Temperature intolerance [Unknown]
  - Sjogren^s syndrome [Unknown]
  - Nausea [Unknown]
  - Femur fracture [Unknown]
  - Post procedural discomfort [Unknown]
  - Tinnitus [Unknown]
  - Arthralgia [Unknown]
  - Drug ineffective [Unknown]
  - Dry mouth [Unknown]
  - Dyspnoea [Unknown]
  - Ulcerative keratitis [Unknown]
  - Anxiety [Unknown]
  - Surgery [Unknown]
  - Fatigue [Unknown]
  - Neck pain [Unknown]
  - Insomnia [Unknown]
  - Nerve injury [Unknown]

NARRATIVE: CASE EVENT DATE: 20170629
